FAERS Safety Report 13821457 (Version 7)
Quarter: 2018Q2

REPORT INFORMATION
  Report Type: Spontaneous
  Country: JP (occurrence: JP)
  Receive Date: 20170801
  Receipt Date: 20180424
  Transmission Date: 20180711
  Serious: Yes (Death, Other)
  Sender: FDA-Public Use
  Company Number: JP-009507513-1705JPN000937J

PATIENT
  Age: 79 Year
  Sex: Male
  Weight: 47 kg

DRUGS (5)
  1. KEYTRUDA [Suspect]
     Active Substance: PEMBROLIZUMAB
     Indication: LUNG ADENOCARCINOMA
     Dosage: 200 MG, Q3W
     Route: 041
     Dates: start: 20170510, end: 20170723
  2. NAUZELIN [Concomitant]
     Active Substance: DOMPERIDONE
     Indication: LUNG ADENOCARCINOMA
     Dosage: 10 MG, TID
     Route: 048
     Dates: start: 20170630, end: 20170723
  3. LYRICA [Concomitant]
     Active Substance: PREGABALIN
     Indication: LUNG ADENOCARCINOMA
     Dosage: 25 MG, BID
     Route: 048
     Dates: start: 20170606, end: 20170723
  4. ZYPREXA [Concomitant]
     Active Substance: OLANZAPINE
     Indication: LUNG ADENOCARCINOMA
     Dosage: 2.5 MG, QD
     Route: 048
     Dates: start: 20170706, end: 20170723
  5. OXYCONTIN [Suspect]
     Active Substance: OXYCODONE HYDROCHLORIDE
     Route: 048

REACTIONS (4)
  - Decreased appetite [Recovering/Resolving]
  - Malignant neoplasm progression [Fatal]
  - Pyrexia [Recovered/Resolved]
  - Nausea [Recovering/Resolving]

NARRATIVE: CASE EVENT DATE: 2017
